FAERS Safety Report 14242780 (Version 1)
Quarter: 2017Q4

REPORT INFORMATION
  Report Type: Spontaneous
  Country: RU (occurrence: RU)
  Receive Date: 20171201
  Receipt Date: 20171201
  Transmission Date: 20180321
  Serious: Yes (Other)
  Sender: FDA-Public Use
  Company Number: RU-ASTRAZENECA-2017SF21479

PATIENT
  Age: 65 Year
  Sex: Male
  Weight: 62 kg

DRUGS (5)
  1. CARDIOMAGNYL [Concomitant]
     Active Substance: ASPIRIN\MAGNESIUM HYDROXIDE
  2. BISOPROLOL [Concomitant]
     Active Substance: BISOPROLOL
  3. ENALAPRIL [Concomitant]
     Active Substance: ENALAPRIL
  4. ATORVASTATIN [Concomitant]
     Active Substance: ATORVASTATIN
  5. BRILINTA [Suspect]
     Active Substance: TICAGRELOR
     Indication: MYOCARDIAL INFARCTION
     Route: 048
     Dates: start: 201612

REACTIONS (1)
  - Cholesterol granuloma [Unknown]
